FAERS Safety Report 17521530 (Version 1)
Quarter: 2020Q1

REPORT INFORMATION
  Report Type: Spontaneous
  Country: DE (occurrence: DE)
  Receive Date: 20200310
  Receipt Date: 20200310
  Transmission Date: 20200409
  Serious: Yes (Other)
  Sender: FDA-Public Use
  Company Number: DE-MYLANLABS-2020M1024586

PATIENT
  Age: 47 Year
  Sex: Male

DRUGS (1)
  1. MTX-DURA 7,5 MG/ML INJEKTIONSL?SUNG [Suspect]
     Active Substance: METHOTREXATE SODIUM
     Indication: PSORIATIC ARTHROPATHY
     Dosage: 15 MILLIGRAM, QW
     Route: 058
     Dates: start: 20180831, end: 20190120

REACTIONS (1)
  - Cataract [Recovered/Resolved]

NARRATIVE: CASE EVENT DATE: 201901
